FAERS Safety Report 16818603 (Version 1)
Quarter: 2019Q3

REPORT INFORMATION
  Report Type: Spontaneous
  Country: US (occurrence: US)
  Receive Date: 20190917
  Receipt Date: 20190917
  Transmission Date: 20191005
  Serious: Yes (Other)
  Sender: FDA-Public Use
  Company Number: US-MYLANLABS-2019M1084747

PATIENT
  Age: 68 Year
  Sex: Male

DRUGS (2)
  1. TRIAMCINOLONE [Suspect]
     Active Substance: TRIAMCINOLONE
     Indication: DIAGNOSTIC PROCEDURE
     Route: 065
  2. DEPO-MEDROL [Suspect]
     Active Substance: METHYLPREDNISOLONE ACETATE
     Indication: DIAGNOSTIC PROCEDURE
     Dosage: 0.5 MILLILITER
     Route: 031

REACTIONS (2)
  - Product packaging confusion [Unknown]
  - Wrong product administered [Unknown]
